FAERS Safety Report 20406484 (Version 1)
Quarter: 2022Q1

REPORT INFORMATION
  Report Type: Spontaneous
  Country: US (occurrence: None)
  Receive Date: 20220131
  Receipt Date: 20220131
  Transmission Date: 20220423
  Serious: Yes (Other)
  Sender: FDA-Public Use
  Company Number: None

PATIENT
  Age: 27 Year
  Sex: Male
  Weight: 113.85 kg

DRUGS (4)
  1. OCTAGAM IMMUNE GLOBULIN (HUMAN) [Suspect]
     Active Substance: HUMAN IMMUNOGLOBULIN G
     Indication: Plasma cell myeloma
     Dosage: FREQUENCY : DAILY;?
     Route: 042
     Dates: start: 20220125, end: 20220125
  2. DIPHENHYDRAMINE [Concomitant]
     Active Substance: DIPHENHYDRAMINE
     Dates: start: 20220125, end: 20220125
  3. ACETAMINOPHEN [Concomitant]
     Active Substance: ACETAMINOPHEN
     Dates: start: 20220125, end: 20220125
  4. VELCADE [Concomitant]
     Active Substance: BORTEZOMIB
     Dates: start: 20220125, end: 20220125

REACTIONS (8)
  - Pruritus [None]
  - Nausea [None]
  - Dizziness [None]
  - Vomiting [None]
  - Abdominal pain [None]
  - Back pain [None]
  - Cough [None]
  - Urticaria [None]

NARRATIVE: CASE EVENT DATE: 20220125
